FAERS Safety Report 9123379 (Version 1)
Quarter: 2013Q1

REPORT INFORMATION
  Report Type: Spontaneous
  Country: FR (occurrence: FR)
  Receive Date: 20130227
  Receipt Date: 20130227
  Transmission Date: 20140127
  Serious: Yes (Hospitalization)
  Sender: FDA-Public Use
  Company Number: FR-PFIZER INC-2013064429

PATIENT
  Age: 86 Year
  Sex: Female

DRUGS (9)
  1. ZYVOXID [Suspect]
     Dosage: 600 MG, 1X/DAY
     Dates: start: 20121206, end: 20121216
  2. LOVENOX [Suspect]
     Indication: HIP ARTHROPLASTY
     Dosage: 0.6 ML, 2X/DAY
     Dates: start: 20121206, end: 20121218
  3. PREVISCAN [Suspect]
     Indication: HIP ARTHROPLASTY
     Dosage: 0.75 DF, 1X/DAY
     Route: 048
     Dates: start: 20121214
  4. BISOPROLOL [Concomitant]
     Dosage: 2.5 MG, 2X/DAY
  5. DIGOXINE [Concomitant]
     Dosage: 0.25 DF, 1X/DAY
  6. LEVOTHYROX [Concomitant]
     Dosage: 137.5 UG, 1X/DAY
  7. TEMESTA [Concomitant]
     Dosage: 1 MG, 1X/DAY
  8. FORLAX [Concomitant]
     Dosage: UNK
  9. DOLIPRANE [Concomitant]
     Dosage: 2 DF, AS NEEDED

REACTIONS (1)
  - Haematoma [Recovered/Resolved]
